FAERS Safety Report 10744641 (Version 2)
Quarter: 2015Q1

REPORT INFORMATION
  Report Type: Report from Study
  Country: US (occurrence: US)
  Receive Date: 20150128
  Receipt Date: 20150217
  Transmission Date: 20150721
  Serious: Yes (Death, Hospitalization)
  Sender: FDA-Public Use
  Company Number: PHHO2014US013223

PATIENT
  Age: 64 Year
  Sex: Male
  Weight: 77.73 kg

DRUGS (8)
  1. BLINDED NO TREATMENT RECEIVED [Suspect]
     Active Substance: UNSPECIFIED INGREDIENT
     Indication: NON-SMALL CELL LUNG CANCER
     Dosage: CODE NOT BROKEN
     Route: 048
     Dates: start: 20140909, end: 20140924
  2. PLACEBO [Suspect]
     Active Substance: UNSPECIFIED INGREDIENT
     Indication: NON-SMALL CELL LUNG CANCER
     Dosage: CODE NOT BROKEN
     Route: 048
     Dates: start: 20140909, end: 20140924
  3. COMPARATOR CISPLATIN [Suspect]
     Active Substance: CISPLATIN
     Indication: NON-SMALL CELL LUNG CANCER
     Dosage: 148 MG, (75 MG/M2) INFUSED OVER 2 HOURS
     Route: 041
     Dates: start: 20140909, end: 20140924
  4. VANCOMYCIN HYDROCHLORIDE. [Suspect]
     Active Substance: VANCOMYCIN HYDROCHLORIDE
     Indication: INFECTION PROPHYLAXIS
     Dosage: 1000 MG, QD
     Route: 042
     Dates: start: 20140923, end: 20140924
  5. COMPARATOR PEMETREXED [Suspect]
     Active Substance: PEMETREXED DISODIUM
     Indication: NON-SMALL CELL LUNG CANCER
     Dosage: 985 MG, (500 MG/M2) INFUSED OVER 10 MINUTES
     Route: 041
     Dates: start: 20140909, end: 20140924
  6. VICODIN [Concomitant]
     Active Substance: ACETAMINOPHEN\HYDROCODONE BITARTRATE
     Indication: PAIN
     Dosage: 5/325 MG, AS NEEDED (PRN)
     Route: 048
     Dates: start: 20140922, end: 20140924
  7. BLINDED INC424 [Suspect]
     Active Substance: RUXOLITINIB
     Indication: NON-SMALL CELL LUNG CANCER
     Dosage: CODE NOT BROKEN
     Route: 048
     Dates: start: 20140909, end: 20140924
  8. LEVAQUIN [Concomitant]
     Active Substance: LEVOFLOXACIN
     Indication: ANTIBIOTIC PROPHYLAXIS
     Dosage: 500 MG, QD
     Route: 048
     Dates: start: 20140919, end: 20140924

REACTIONS (4)
  - Pneumonia [Fatal]
  - Pulmonary embolism [Fatal]
  - Acute kidney injury [Fatal]
  - Acute respiratory failure [Fatal]

NARRATIVE: CASE EVENT DATE: 20140924
